FAERS Safety Report 18434250 (Version 2)
Quarter: 2020Q4

REPORT INFORMATION
  Report Type: Spontaneous
  Country: US (occurrence: US)
  Receive Date: 20201028
  Receipt Date: 20201130
  Transmission Date: 20210114
  Serious: Yes (Other)
  Sender: FDA-Public Use
  Company Number: US-DRREDDYS-USA/USA/20/0128410

PATIENT
  Age: 73 Year
  Sex: Male

DRUGS (6)
  1. COTRIMOXAZOLE [Interacting]
     Active Substance: SULFAMETHOXAZOLE\TRIMETHOPRIM
     Indication: ANTIFUNGAL PROPHYLAXIS
  2. DAPSONE. [Interacting]
     Active Substance: DAPSONE
     Indication: ANTIFUNGAL PROPHYLAXIS
  3. MYCOPHENOLATE MOFETIL. [Interacting]
     Active Substance: MYCOPHENOLATE MOFETIL
     Indication: ANTIFUNGAL PROPHYLAXIS
  4. TACROLIMUS. [Interacting]
     Active Substance: TACROLIMUS
     Indication: ANTIFUNGAL PROPHYLAXIS
  5. NYSTATIN. [Interacting]
     Active Substance: NYSTATIN
     Indication: ANTIFUNGAL PROPHYLAXIS
  6. VALGANCICLOVIR. [Suspect]
     Active Substance: VALGANCICLOVIR
     Indication: ANTIFUNGAL PROPHYLAXIS

REACTIONS (3)
  - Acute kidney injury [Unknown]
  - Drug interaction [Unknown]
  - Haemolytic anaemia [Recovering/Resolving]
